FAERS Safety Report 9577707 (Version 1)
Quarter: 2013Q4

REPORT INFORMATION
  Report Type: Spontaneous
  Country: US (occurrence: US)
  Receive Date: 20131001
  Receipt Date: 20131001
  Transmission Date: 20140711
  Serious: No
  Sender: FDA-Public Use
  Company Number: US-AMGEN-USASP2013009441

PATIENT
  Age: 46 Year
  Sex: Male
  Weight: 140.59 kg

DRUGS (2)
  1. ENBREL [Suspect]
     Indication: PSORIASIS
     Dosage: 50 MG, 2 TIMES/WK
  2. TRIAMCINOLON                       /00031901/ [Concomitant]
     Dosage: 0.025 %, UNK

REACTIONS (1)
  - Fatigue [Unknown]
